FAERS Safety Report 18579290 (Version 2)
Quarter: 2021Q1

REPORT INFORMATION
  Report Type: Spontaneous
  Country: US (occurrence: US)
  Receive Date: 20201204
  Receipt Date: 20210108
  Transmission Date: 20210419
  Serious: No
  Sender: FDA-Public Use
  Company Number: US-ASTRAZENECA-2020SF48455

PATIENT
  Age: 658 Month
  Sex: Female
  Weight: 108.9 kg

DRUGS (11)
  1. BUDESONIDE AND FORMOTEROL AEROSOL [Suspect]
     Active Substance: BUDESONIDE\FORMOTEROL FUMARATE DIHYDRATE
     Indication: CHRONIC OBSTRUCTIVE PULMONARY DISEASE
     Dosage: GENERIC BUDESONIDE AND FORMOTEROL AEROSOL INHALER UNKNOWN
     Route: 055
  2. BUDESONIDE AND FORMOTEROL AEROSOL [Suspect]
     Active Substance: BUDESONIDE\FORMOTEROL FUMARATE DIHYDRATE
     Indication: CHRONIC OBSTRUCTIVE PULMONARY DISEASE
     Dosage: 1604.5 MCG TWO PUFFS TWICE A DAY UNKNOWN
     Route: 055
     Dates: start: 20201012
  3. CLONAZAPAM [Concomitant]
     Active Substance: CLONAZEPAM
     Indication: ANXIETY
     Dosage: 1.0MG AS REQUIRED
  4. ALBUTEROL. [Concomitant]
     Active Substance: ALBUTEROL
  5. DULERA [Concomitant]
     Active Substance: FORMOTEROL FUMARATE DIHYDRATE\MOMETASONE FUROATE
  6. TORSEMIDE. [Concomitant]
     Active Substance: TORSEMIDE
     Indication: FLUID IMBALANCE
  7. OSCAL [Concomitant]
     Active Substance: CALCIUM CARBONATE
  8. LATANOPROST. [Concomitant]
     Active Substance: LATANOPROST
     Indication: GLAUCOMA
     Route: 047
     Dates: start: 2013
  9. IPRATROPIUM BR [Concomitant]
  10. VITAMIN D3 [Concomitant]
     Active Substance: CHOLECALCIFEROL
  11. ALBUTEROL SULFATE. [Concomitant]
     Active Substance: ALBUTEROL SULFATE
     Indication: PROPHYLAXIS
     Dosage: AS REQUIRED

REACTIONS (4)
  - Dyspnoea [Not Recovered/Not Resolved]
  - Intentional device misuse [Not Recovered/Not Resolved]
  - Product taste abnormal [Unknown]
  - Product formulation issue [Unknown]

NARRATIVE: CASE EVENT DATE: 202010
